FAERS Safety Report 4366188-6 (Version None)
Quarter: 2004Q2

REPORT INFORMATION
  Report Type: 
  Country: None (occurrence: None)
  Receive Date: 20040524
  Receipt Date: 20040511
  Transmission Date: 20050107
  Serious: Yes (Hospitalization)
  Sender: FDA-Public Use
  Company Number: 2004031970

PATIENT
  Age: 71 Year
  Sex: Female

DRUGS (1)
  1. LIPITOR [Suspect]
     Indication: ILL-DEFINED DISORDER
     Dosage: 5 MG (1 IN 1 D),ORAL
     Route: 048

REACTIONS (3)
  - BLOOD CREATINE PHOSPHOKINASE MB INCREASED [None]
  - HYPOAESTHESIA [None]
  - SPONDYLOSIS [None]
